FAERS Safety Report 8614134-9 (Version None)
Quarter: 2012Q3

REPORT INFORMATION
  Report Type: 
  Country: None (occurrence: None)
  Receive Date: 20120823
  Receipt Date: 20120821
  Transmission Date: 20120928
  Serious: Yes (Other)
  Sender: FDA-Public Use
  Company Number: CA-BAYER-2012-086018

PATIENT
  Age: 50 Year
  Sex: Male
  Weight: 86.168 kg

DRUGS (1)
  1. LEVITRA [Suspect]
     Dosage: 20 MG, QD
     Route: 065

REACTIONS (3)
  - INFLUENZA LIKE ILLNESS [None]
  - HEADACHE [None]
  - VISUAL IMPAIRMENT [None]
